FAERS Safety Report 15736214 (Version 1)
Quarter: 2018Q4

REPORT INFORMATION
  Report Type: Spontaneous
  Country: JP (occurrence: JP)
  Receive Date: 20181218
  Receipt Date: 20181218
  Transmission Date: 20190205
  Serious: Yes (Other)
  Sender: FDA-Public Use
  Company Number: JP-ASTRAZENECA-2018SF62124

PATIENT
  Age: 71 Year
  Sex: Male

DRUGS (5)
  1. CARBOPLATIN. [Concomitant]
     Active Substance: CARBOPLATIN
     Indication: MALIGNANT PLEURAL EFFUSION
     Dosage: SECOND-LINE TREATMENT
     Dates: start: 201209
  2. PEMETREXED. [Concomitant]
     Active Substance: PEMETREXED
     Indication: MALIGNANT PLEURAL EFFUSION
     Dosage: SECOND-LINE TREATMENT
     Dates: start: 201209
  3. GEFITINIB. [Suspect]
     Active Substance: GEFITINIB
     Indication: LUNG ADENOCARCINOMA STAGE IV
     Dosage: FIRST-LINE TREATMENT
     Route: 048
     Dates: start: 201104
  4. PEMETREXED. [Concomitant]
     Active Substance: PEMETREXED
     Indication: MALIGNANT PLEURAL EFFUSION
     Dosage: THIRD-LINE TREATMENT
  5. ERLOTINIB [Concomitant]
     Active Substance: ERLOTINIB
     Indication: LUNG ADENOCARCINOMA STAGE IV
     Dosage: FOURTH-LINE TREATMENT

REACTIONS (1)
  - Drug resistance [Not Recovered/Not Resolved]
